FAERS Safety Report 11701175 (Version 5)
Quarter: 2017Q3

REPORT INFORMATION
  Report Type: Spontaneous
  Country: CN (occurrence: CN)
  Receive Date: 20151105
  Receipt Date: 20170719
  Transmission Date: 20171127
  Serious: Yes (Life-Threatening, Hospitalization, Other)
  Sender: FDA-Public Use
  Company Number: CN-SA-2015SA175063

PATIENT
  Age: 61 Year
  Sex: Male

DRUGS (3)
  1. NITROGLYCERINE [Concomitant]
     Active Substance: NITROGLYCERIN
     Route: 060
  2. ASPIRIN. [Concomitant]
     Active Substance: ASPIRIN
  3. CLOPIDOGREL BISULFATE. [Suspect]
     Active Substance: CLOPIDOGREL BISULFATE
     Indication: ARTERIOGRAM CORONARY
     Route: 065

REACTIONS (12)
  - Pruritus generalised [Recovering/Resolving]
  - Tryptase increased [Unknown]
  - Kounis syndrome [Recovered/Resolved]
  - Arteriospasm coronary [Unknown]
  - Syncope [Unknown]
  - Atrioventricular block complete [Unknown]
  - Loss of consciousness [Unknown]
  - Electrocardiogram ST segment elevation [Unknown]
  - Rash erythematous [Recovered/Resolved]
  - Hyperhidrosis [Unknown]
  - Blood immunoglobulin E increased [Unknown]
  - Drug hypersensitivity [Recovered/Resolved]
